FAERS Safety Report 15949547 (Version 1)
Quarter: 2019Q1

REPORT INFORMATION
  Report Type: Spontaneous
  Country: HU (occurrence: HU)
  Receive Date: 20190211
  Receipt Date: 20190211
  Transmission Date: 20190417
  Serious: Yes (Other)
  Sender: FDA-Public Use
  Company Number: HU-TEVA-2019-HU-1009683

PATIENT
  Age: 27 Year
  Sex: Male

DRUGS (1)
  1. CIPROFLOXACIN. [Suspect]
     Active Substance: CIPROFLOXACIN
     Route: 048
     Dates: start: 201901, end: 201901

REACTIONS (8)
  - Myalgia [Unknown]
  - Movement disorder [Unknown]
  - Agitation [Unknown]
  - Paralysis [Unknown]
  - Arthralgia [Unknown]
  - Skin disorder [Unknown]
  - Tendon pain [Unknown]
  - Sleep deficit [Unknown]
